FAERS Safety Report 7751488-X (Version None)
Quarter: 2011Q3

REPORT INFORMATION
  Report Type: 
  Country: None (occurrence: None)
  Receive Date: 20110914
  Receipt Date: 20110902
  Transmission Date: 20111222
  Serious: Yes (Hospitalization)
  Sender: FDA-Public Use
  Company Number: PHHY2009JP15929

PATIENT
  Sex: Female

DRUGS (9)
  1. TASIGNA [Suspect]
     Dosage: 400 MG PER DAY
     Route: 048
     Dates: start: 20090710
  2. MAGMITT [Suspect]
     Dosage: 990 MG, UNK
     Route: 048
     Dates: start: 20090423
  3. ISODINE [Concomitant]
     Route: 048
  4. LENDORMIN [Concomitant]
     Dosage: 0.25 MG, UNK
     Dates: start: 20090601
  5. PURSENNID [Concomitant]
     Dosage: 24 MG, UNK
     Route: 048
     Dates: start: 20090601
  6. MEILAX [Concomitant]
     Dosage: 1 MG, UNK
     Route: 048
     Dates: start: 20090514, end: 20090520
  7. ANPLAG [Concomitant]
     Dosage: 300 MG, UNK
     Route: 048
     Dates: start: 20090601
  8. CLARITIN [Concomitant]
     Dosage: 10 MG, UNK
     Route: 048
     Dates: start: 20090331
  9. TASIGNA [Suspect]
     Indication: CHRONIC MYELOID LEUKAEMIA
     Dosage: 800 MG PER DAY
     Dates: start: 20090417, end: 20090529

REACTIONS (5)
  - BLOOD BILIRUBIN INCREASED [None]
  - PLATELET COUNT DECREASED [None]
  - BLOOD MAGNESIUM INCREASED [None]
  - HEPATIC FUNCTION ABNORMAL [None]
  - PALPITATIONS [None]
